FAERS Safety Report 25045482 (Version 1)
Quarter: 2025Q1

REPORT INFORMATION
  Report Type: Spontaneous
  Country: US (occurrence: US)
  Receive Date: 20250306
  Receipt Date: 20250306
  Transmission Date: 20250408
  Serious: Yes (Death, Other)
  Sender: CSL BEHRING
  Company Number: US-BEH-2025197803

PATIENT
  Age: 66 Year
  Sex: Female

DRUGS (11)
  1. PRIVIGEN [Suspect]
     Active Substance: HUMAN IMMUNOGLOBULIN G
     Indication: Immunodeficiency common variable
     Dosage: 60 G, QMT (EVERY 4 WEEKS)
     Route: 042
  2. FUROSEMIDE [Concomitant]
     Active Substance: FUROSEMIDE
  3. METOPROLOL [Concomitant]
     Active Substance: METOPROLOL
  4. NITROGLYCERIN [Concomitant]
     Active Substance: NITROGLYCERIN
  5. MOUNJARO [Concomitant]
     Active Substance: TIRZEPATIDE
  6. GLIMEPIRIDE [Concomitant]
     Active Substance: GLIMEPIRIDE
  7. METFORMIN HYDROCHLORIDE [Concomitant]
     Active Substance: METFORMIN HYDROCHLORIDE
  8. PIOGLITAZONE [Concomitant]
     Active Substance: PIOGLITAZONE
  9. TRELEGY ELLIPTA [Concomitant]
     Active Substance: FLUTICASONE FUROATE\UMECLIDINIUM BROMIDE\VILANTEROL TRIFENATATE
  10. GABAPENTIN [Concomitant]
     Active Substance: GABAPENTIN
  11. VITAMIN D [Concomitant]
     Active Substance: VITAMIN D NOS

REACTIONS (1)
  - Death [Fatal]

NARRATIVE: CASE EVENT DATE: 20250226
